FAERS Safety Report 11769072 (Version 4)
Quarter: 2016Q1

REPORT INFORMATION
  Report Type: Spontaneous
  Country: JP (occurrence: None)
  Receive Date: 20151123
  Receipt Date: 20160108
  Transmission Date: 20160525
  Serious: Yes (Hospitalization, Other)
  Sender: FDA-Public Use
  Company Number: JP-MDT-ADR-2015-02211

PATIENT
  Age: 71 Year
  Sex: Male
  Weight: 56 kg

DRUGS (1)
  1. GABALON INTRATHECAL 0.05% [Suspect]
     Active Substance: BACLOFEN

REACTIONS (2)
  - Carcinoid tumour of the stomach [None]
  - Gastric cancer [None]
